FAERS Safety Report 7585361-7 (Version None)
Quarter: 2011Q3

REPORT INFORMATION
  Report Type: 
  Country: None (occurrence: None)
  Receive Date: 20110701
  Receipt Date: 20081001
  Transmission Date: 20111222
  Serious: Yes (Other)
  Sender: FDA-Public Use
  Company Number: US-BAYER-201040756NA

PATIENT
  Age: 60 Year
  Sex: Male
  Weight: 103 kg

DRUGS (18)
  1. TRASYLOL [Suspect]
     Indication: CORONARY ARTERY BYPASS
     Dosage: 200 ML, ONCE, CARDIOPULMONARY BYPASS PRIME
     Route: 042
     Dates: start: 20050523, end: 20050523
  2. ATIVAN [Concomitant]
     Dosage: 2 MG, UNK
     Route: 042
     Dates: start: 20050523, end: 20050523
  3. METOPROLOL TARTRATE [Concomitant]
  4. LOTENSIN [Concomitant]
  5. PROTAMINE SULFATE [Concomitant]
     Dosage: 400 MG, UNK
     Route: 042
     Dates: start: 20050523
  6. VERSED [Concomitant]
     Dosage: 15 MG, UNK
     Route: 042
     Dates: start: 20050523, end: 20050523
  7. VECURONIUM BROMIDE [Concomitant]
     Dosage: UNK
     Route: 042
     Dates: start: 20050523, end: 20050523
  8. FENTANYL [Concomitant]
     Dosage: 40 MG, UNK
     Route: 042
     Dates: start: 20050523, end: 20050523
  9. HEPARIN [Concomitant]
     Dosage: UNK,VARIED DOSAGES
     Route: 042
     Dates: start: 20050519
  10. VANCOMYCIN [Concomitant]
     Dosage: 1 G, UNK
     Route: 042
     Dates: start: 20050523, end: 20050523
  11. BENAZEPRIL HYDROCHLORIDE [Concomitant]
     Dosage: 10 MG, UNK
     Route: 048
     Dates: start: 20050521
  12. ACETYLSALICYLIC ACID SRT [Concomitant]
     Dosage: UNK
  13. HEPARIN [Concomitant]
     Dosage: 66,000
     Route: 042
     Dates: start: 20050523
  14. ZINACEF [Concomitant]
     Dosage: 1.5 G, UNK
     Route: 042
     Dates: start: 20050523, end: 20050523
  15. LASIX [Concomitant]
     Dosage: 40 MG, UNK
     Route: 042
     Dates: start: 20050520
  16. SOLU-MEDROL [Concomitant]
     Dosage: 125 MG, UNK
     Route: 042
     Dates: start: 20050523, end: 20050523
  17. PLASMALYTE [GLUCOSE,POTASSIUM CHLORIDE] [Concomitant]
     Dosage: 1500 ML, UNK
     Route: 042
     Dates: start: 20050523, end: 20050523
  18. OMNIPAQUE 140 [Concomitant]
     Indication: CATHETERISATION CARDIAC
     Dosage: UNK
     Dates: start: 20050520

REACTIONS (8)
  - PAIN [None]
  - EMOTIONAL DISTRESS [None]
  - CEREBROVASCULAR ACCIDENT [None]
  - DEPRESSION [None]
  - ANXIETY [None]
  - INJURY [None]
  - STRESS [None]
  - MENTAL DISORDER [None]
